FAERS Safety Report 8562928 (Version 2)
Quarter: 2013Q1

REPORT INFORMATION
  Report Type: Report from Study
  Country: CA (occurrence: CA)
  Receive Date: 20120515
  Receipt Date: 20130107
  Transmission Date: 20140127
  Serious: Yes (Hospitalization)
  Sender: FDA-Public Use
  Company Number: CA-ROCHE-1067003

PATIENT
  Age: 52 Year
  Sex: Male

DRUGS (8)
  1. RANIBIZUMAB [Suspect]
     Indication: DIABETIC RETINAL OEDEMA
     Dosage: LAST DOSE PRIOR TO SAE: 19/MAR/2012
     Route: 050
     Dates: start: 20110617
  2. NOVOLIN [Concomitant]
     Route: 065
     Dates: start: 20110223, end: 20120427
  3. ATORVASTATIN [Concomitant]
     Route: 065
     Dates: start: 20110225, end: 20120427
  4. COVERSYL [Concomitant]
     Route: 065
     Dates: start: 20110225, end: 20120427
  5. NEXIUM [Concomitant]
     Route: 065
     Dates: start: 2010, end: 20120427
  6. GLYBURIDE [Concomitant]
     Route: 065
     Dates: start: 2006, end: 20120427
  7. METFORMIN [Concomitant]
     Route: 065
     Dates: start: 2006, end: 20120427
  8. ATIVAN [Concomitant]
     Route: 065
     Dates: start: 2001

REACTIONS (1)
  - Lung disorder [Unknown]
